FAERS Safety Report 15295501 (Version 1)
Quarter: 2018Q3

REPORT INFORMATION
  Report Type: Spontaneous
  Country: JP (occurrence: JP)
  Receive Date: 20180820
  Receipt Date: 20180820
  Transmission Date: 20181010
  Serious: Yes (Other)
  Sender: FDA-Public Use
  Company Number: JP-ELI_LILLY_AND_COMPANY-JP201808005185

PATIENT
  Age: 85 Year

DRUGS (1)
  1. GEMZAR [Suspect]
     Active Substance: GEMCITABINE HYDROCHLORIDE
     Indication: PANCREATIC CARCINOMA
     Dosage: UNK
     Route: 042

REACTIONS (4)
  - Rhabdomyolysis [Recovering/Resolving]
  - Myoglobinuria [Recovering/Resolving]
  - Blood creatine phosphokinase increased [Recovering/Resolving]
  - Groin pain [Recovering/Resolving]
